FAERS Safety Report 8189545-9 (Version None)
Quarter: 2012Q1

REPORT INFORMATION
  Report Type: 
  Country: None (occurrence: None)
  Receive Date: 20120307
  Receipt Date: 20120228
  Transmission Date: 20120608
  Serious: Yes (Death, Other)
  Sender: FDA-Public Use
  Company Number: US-ROXANE LABORATORIES, INC.-2012-RO-00743RO

PATIENT
  Age: 56 Year
  Sex: Female

DRUGS (1)
  1. MEGESTROL ACETATE [Suspect]
     Indication: ENDOMETRIAL SARCOMA
     Dosage: 120 MG

REACTIONS (3)
  - DISEASE COMPLICATION [None]
  - MENINGIOMA [None]
  - DISEASE RECURRENCE [None]
